FAERS Safety Report 4289990-8 (Version None)
Quarter: 2004Q1

REPORT INFORMATION
  Report Type: 
  Country: None (occurrence: None)
  Receive Date: 20040209
  Receipt Date: 20040127
  Transmission Date: 20041129
  Serious: Yes (Death)
  Sender: FDA-Public Use
  Company Number: 04P-163-0249028-00

PATIENT
  Age: 10 Month

DRUGS (3)
  1. NORVIR [Suspect]
     Indication: HIV INFECTION
     Dosage: 140 MG, 2 IN 1 D
     Dates: start: 20030422, end: 20030503
  2. STAVUDINE [Suspect]
     Indication: HIV INFECTION
     Dosage: 7 MG, 2 IN 1 D
     Dates: start: 20030422, end: 20030503
  3. LAMIVUDINE [Suspect]
     Indication: HIV INFECTION
     Dosage: 30 MG, 2 IN 1 D
     Dates: start: 20030422, end: 20030503

REACTIONS (1)
  - SEPSIS [None]
